FAERS Safety Report 8577627-9 (Version None)
Quarter: 2012Q3

REPORT INFORMATION
  Report Type: 
  Country: None (occurrence: None)
  Receive Date: 20120807
  Receipt Date: 20120803
  Transmission Date: 20120928
  Serious: Yes (Hospitalization)
  Sender: FDA-Public Use
  Company Number: IT-SANOFI-AVENTIS-2012SA055463

PATIENT
  Age: 83 Year
  Sex: Female

DRUGS (6)
  1. RAMIPRIL [Suspect]
     Route: 048
     Dates: start: 20110620
  2. TRIAZOLAM [Concomitant]
  3. FUROSEMIDE [Suspect]
     Route: 048
     Dates: start: 20110115, end: 20120420
  4. FUROSEMIDE [Suspect]
     Route: 048
     Dates: start: 20110115
  5. LANOXIN [Concomitant]
  6. IBUPROFEN [Concomitant]
     Dosage: FORM: EFFERVESCENT GRANULES

REACTIONS (2)
  - HYPOTENSION [None]
  - PRESYNCOPE [None]
